FAERS Safety Report 22164466 (Version 2)
Quarter: 2023Q2

REPORT INFORMATION
  Report Type: Report from Study
  Country: PL (occurrence: PL)
  Receive Date: 20230403
  Receipt Date: 20230412
  Transmission Date: 20230722
  Serious: Yes (Hospitalization)
  Sender: FDA-Public Use
  Company Number: PL-002147023-NVSC2023PL068472

PATIENT
  Age: 52 Year
  Sex: Female
  Weight: 49.8 kg

DRUGS (12)
  1. PLACEBO [Suspect]
     Active Substance: UNSPECIFIED INGREDIENT
     Indication: Multiple sclerosis relapse
     Dosage: UNK
     Route: 058
     Dates: start: 20190722
  2. OFATUMUMAB [Suspect]
     Active Substance: OFATUMUMAB
     Indication: Multiple sclerosis relapse
     Dosage: 20 MG, Q4W
     Route: 058
     Dates: start: 20190715
  3. PREGABALIN [Concomitant]
     Active Substance: PREGABALIN
     Indication: Spinal pain
     Dosage: UNK
     Route: 065
     Dates: start: 20200120
  4. PREGABALIN [Concomitant]
     Active Substance: PREGABALIN
     Dosage: UNK
     Route: 065
     Dates: start: 20221124
  5. HEPATIL [Concomitant]
     Indication: Prophylaxis
     Dosage: UNK
     Route: 065
     Dates: start: 20171113
  6. ZALDIAR [Concomitant]
     Active Substance: ACETAMINOPHEN\TRAMADOL HYDROCHLORIDE
     Indication: Spinal pain
     Dosage: UNK
     Route: 065
     Dates: start: 20200120
  7. TRAMADOL HYDROCHLORIDE [Concomitant]
     Active Substance: TRAMADOL HYDROCHLORIDE
     Indication: Spinal pain
     Dosage: UNK
     Route: 065
     Dates: start: 20200708
  8. DICLODUO COMBI [Concomitant]
     Indication: Spinal pain
     Dosage: UNK
     Route: 065
     Dates: start: 20201105
  9. ACETAMINOPHEN\TRAMADOL HYDROCHLORIDE [Concomitant]
     Active Substance: ACETAMINOPHEN\TRAMADOL HYDROCHLORIDE
     Indication: Back pain
     Dosage: UNK
     Route: 065
     Dates: start: 20210811
  10. ACETAMINOPHEN\TRAMADOL HYDROCHLORIDE [Concomitant]
     Active Substance: ACETAMINOPHEN\TRAMADOL HYDROCHLORIDE
     Dosage: UNK
     Route: 065
     Dates: start: 20220419
  11. DEXAMETHASONE SODIUM PHOSPHATE [Concomitant]
     Active Substance: DEXAMETHASONE SODIUM PHOSPHATE
     Indication: Vitreous floaters
     Dosage: UNK
     Route: 065
     Dates: start: 20220920
  12. PROPRANOLOL [Concomitant]
     Active Substance: PROPRANOLOL HYDROCHLORIDE
     Indication: Tachycardia
     Dosage: UNK
     Route: 065
     Dates: start: 20220901

REACTIONS (1)
  - Chorioretinitis [Recovered/Resolved]

NARRATIVE: CASE EVENT DATE: 20230206
